FAERS Safety Report 10203021 (Version 1)
Quarter: 2014Q2

REPORT INFORMATION
  Report Type: Spontaneous
  Country: PL (occurrence: PL)
  Receive Date: 20140528
  Receipt Date: 20140528
  Transmission Date: 20141212
  Serious: Yes (Hospitalization, Other)
  Sender: FDA-Public Use
  Company Number: PL-JNJFOC-20140514163

PATIENT
  Age: 28 Year
  Sex: Female

DRUGS (2)
  1. PARACETAMOL [Suspect]
     Indication: DYSMENORRHOEA
     Route: 048
  2. KETOPROFEN [Suspect]
     Indication: DYSMENORRHOEA
     Route: 065

REACTIONS (1)
  - Haematemesis [Unknown]
